FAERS Safety Report 18125293 (Version 7)
Quarter: 2021Q1

REPORT INFORMATION
  Report Type: Spontaneous
  Country: US (occurrence: US)
  Receive Date: 20200807
  Receipt Date: 20210224
  Transmission Date: 20210419
  Serious: Yes (Other)
  Sender: FDA-Public Use
  Company Number: US-THERATECHNOLOGIES INC.-2020-THE-TES-000172

PATIENT
  Age: 60 Year
  Sex: Male

DRUGS (30)
  1. CYANOCOBALAMIN. [Concomitant]
     Active Substance: CYANOCOBALAMIN
  2. ALPRAZOLAM. [Concomitant]
     Active Substance: ALPRAZOLAM
  3. EGRIFTA SV [Suspect]
     Active Substance: TESAMORELIN ACETATE
     Dosage: 2 MG, QD
     Route: 058
     Dates: start: 202006, end: 20201120
  4. ASPIRIN 81 [Concomitant]
     Active Substance: ASPIRIN
  5. CLINDAMYCIN PHOSPHATE. [Concomitant]
     Active Substance: CLINDAMYCIN PHOSPHATE
  6. KETOCONAZOLE. [Concomitant]
     Active Substance: KETOCONAZOLE
  7. VENTOLIN HFA [Concomitant]
     Active Substance: ALBUTEROL SULFATE
  8. VOLTAREN [Concomitant]
     Active Substance: DICLOFENAC SODIUM
  9. DIOVAN [Concomitant]
     Active Substance: VALSARTAN
  10. VITAMINS NOS [Concomitant]
     Active Substance: VITAMINS
  11. VITAMIN B1 [Concomitant]
     Active Substance: THIAMINE HYDROCHLORIDE
  12. VITAMIN B12 [Concomitant]
     Active Substance: CYANOCOBALAMIN
  13. FAMOTIDINE. [Concomitant]
     Active Substance: FAMOTIDINE
  14. LIDOCAINE. [Concomitant]
     Active Substance: LIDOCAINE
  15. NITROSTAT [Concomitant]
     Active Substance: NITROGLYCERIN
  16. SELENIUM [Concomitant]
     Active Substance: SELENIUM
  17. SOTALOL HCL [Concomitant]
     Active Substance: SOTALOL
  18. XARELTO [Concomitant]
     Active Substance: RIVAROXABAN
  19. DEPO?TESTOSTERONE [Concomitant]
     Active Substance: TESTOSTERONE CYPIONATE
  20. OXYCODONE HYDROCHLORIDE. [Concomitant]
     Active Substance: OXYCODONE HYDROCHLORIDE
  21. PRAVASTATIN SODIUM. [Concomitant]
     Active Substance: PRAVASTATIN SODIUM
  22. EGRIFTA SV [Suspect]
     Active Substance: TESAMORELIN ACETATE
     Indication: LIPODYSTROPHY ACQUIRED
     Dosage: 2 MG, QD
     Route: 058
     Dates: start: 202006
  23. AZELASTINE HCL [Concomitant]
     Active Substance: AZELASTINE HYDROCHLORIDE
  24. ISENTRESS [Concomitant]
     Active Substance: RALTEGRAVIR POTASSIUM
  25. DESCOVY [Concomitant]
     Active Substance: EMTRICITABINE\TENOFOVIR ALAFENAMIDE FUMARATE
  26. FLOVENT HFA [Concomitant]
     Active Substance: FLUTICASONE PROPIONATE
  27. INTELENCE [Concomitant]
     Active Substance: ETRAVIRINE
  28. JUVEN [Concomitant]
     Active Substance: .BETA.-HYDROXYISOVALERIC ACID\ARGININE\GLUTAMINE
  29. OMEPRAZOLE. [Concomitant]
     Active Substance: OMEPRAZOLE
  30. ZOVIRAX [Concomitant]
     Active Substance: ACYCLOVIR

REACTIONS (12)
  - Head injury [Recovered/Resolved]
  - Injection site erythema [Recovered/Resolved]
  - Injection site haemorrhage [Recovered/Resolved]
  - Fluid retention [Not Recovered/Not Resolved]
  - Injection site bruising [Recovered/Resolved]
  - Product administration error [Unknown]
  - Loss of consciousness [Recovered/Resolved]
  - Product dose omission issue [Recovered/Resolved]
  - Pain [Recovered/Resolved]
  - Injection site pruritus [Recovered/Resolved]
  - Hypersensitivity [Recovered/Resolved]
  - Erythema [Recovered/Resolved]

NARRATIVE: CASE EVENT DATE: 202006
